FAERS Safety Report 14283418 (Version 1)
Quarter: 2017Q4

REPORT INFORMATION
  Report Type: Report from Study
  Country: IN (occurrence: IN)
  Receive Date: 20171213
  Receipt Date: 20171213
  Transmission Date: 20180321
  Serious: Yes (Hospitalization)
  Sender: FDA-Public Use
  Company Number: IN-BIOGEN-2017BI00497187

PATIENT
  Age: 35 Year
  Sex: Male

DRUGS (1)
  1. AVONEX [Suspect]
     Active Substance: INTERFERON BETA-1A
     Indication: MULTIPLE SCLEROSIS
     Route: 065
     Dates: start: 20170429, end: 20171107

REACTIONS (3)
  - Gait inability [Recovered/Resolved with Sequelae]
  - Dysstasia [Recovered/Resolved with Sequelae]
  - Muscle spasms [Unknown]

NARRATIVE: CASE EVENT DATE: 20170429
